FAERS Safety Report 23578570 (Version 2)
Quarter: 2024Q1

REPORT INFORMATION
  Report Type: Spontaneous
  Country: ES (occurrence: ES)
  Receive Date: 20240229
  Receipt Date: 20240311
  Transmission Date: 20240410
  Serious: Yes (Hospitalization)
  Sender: FDA-Public Use
  Company Number: ES-002147023-NVSC2024ES035363

PATIENT
  Age: 50 Year
  Sex: Male

DRUGS (1)
  1. PAZOPANIB [Suspect]
     Active Substance: PAZOPANIB
     Indication: Clear cell renal cell carcinoma
     Dosage: UNK
     Route: 065

REACTIONS (4)
  - Pilonidal disease [Recovered/Resolved]
  - Hidradenitis [Recovered/Resolved]
  - Concomitant disease aggravated [Recovered/Resolved]
  - Wound dehiscence [Unknown]
